FAERS Safety Report 4794268-X (Version None)
Quarter: 2005Q4

REPORT INFORMATION
  Report Type: 
  Country: None (occurrence: None)
  Receive Date: 20051011
  Receipt Date: 20041203
  Transmission Date: 20060501
  Serious: Yes (Other)
  Sender: FDA-Public Use
  Company Number: GB-GLAXOSMITHKLINE-B0359473A

PATIENT
  Sex: Male

DRUGS (2)
  1. SEROXAT [Suspect]
     Dosage: 30MG PER DAY
     Route: 065
     Dates: start: 19970922, end: 20030101
  2. DIAZEPAM [Concomitant]
     Dosage: 5MG THREE TIMES PER DAY
     Dates: start: 19930101

REACTIONS (3)
  - COMPLETED SUICIDE [None]
  - DRUG WITHDRAWAL SYNDROME [None]
  - OVERDOSE [None]
